FAERS Safety Report 4756054-6 (Version None)
Quarter: 2005Q3

REPORT INFORMATION
  Report Type: 
  Country: None (occurrence: None)
  Receive Date: 20050826
  Receipt Date: 20041115
  Transmission Date: 20060218
  Serious: Yes (Other)
  Sender: FDA-Public Use
  Company Number: USA-2004-0017735

PATIENT
  Sex: Female

DRUGS (1)
  1. OXYCONTIN [Suspect]
     Indication: PAIN

REACTIONS (12)
  - ABDOMINAL PAIN UPPER [None]
  - AGITATION [None]
  - BLOOD PRESSURE INCREASED [None]
  - CHILLS [None]
  - DIARRHOEA [None]
  - DISORIENTATION [None]
  - DRUG DEPENDENCE [None]
  - DRUG WITHDRAWAL SYNDROME [None]
  - FEELING DRUNK [None]
  - MEMORY IMPAIRMENT [None]
  - PAIN [None]
  - PAIN IN EXTREMITY [None]
